FAERS Safety Report 10765468 (Version 1)
Quarter: 2015Q1

REPORT INFORMATION
  Report Type: Spontaneous
  Country: US (occurrence: None)
  Receive Date: 20150204
  Receipt Date: 20150204
  Transmission Date: 20150721
  Serious: No
  Sender: FDA-Public Use
  Company Number: None

PATIENT
  Age: 42 Year
  Sex: Female
  Weight: 74.39 kg

DRUGS (1)
  1. ACETAMINOPHEN. [Suspect]
     Active Substance: ACETAMINOPHEN
     Indication: HEADACHE
     Dosage: 2 PILLS -- TAKEN BY MOUTH
     Route: 048
     Dates: start: 20150201

REACTIONS (4)
  - Product taste abnormal [None]
  - Maternal exposure during pregnancy [None]
  - Product odour abnormal [None]
  - Vomiting [None]

NARRATIVE: CASE EVENT DATE: 20150201
